FAERS Safety Report 26060333 (Version 1)
Quarter: 2025Q4

REPORT INFORMATION
  Report Type: Spontaneous
  Country: EU (occurrence: EU)
  Receive Date: 20251118
  Receipt Date: 20251118
  Transmission Date: 20260117
  Serious: Yes (Other)
  Sender: ABBVIE
  Company Number: EU-ABBVIE-6553489

PATIENT
  Age: 63 Year
  Sex: Male

DRUGS (1)
  1. RINVOQ [Suspect]
     Active Substance: UPADACITINIB
     Indication: Dermatitis atopic
     Dosage: FORM STRENGTH: RINVOQ 15 ,?1X DAILY 15 MG
     Route: 048
     Dates: start: 202504, end: 20250821

REACTIONS (3)
  - Bile duct cancer [Unknown]
  - Vision blurred [Unknown]
  - Chromaturia [Unknown]

NARRATIVE: CASE EVENT DATE: 20250821
